FAERS Safety Report 5390865-1 (Version None)
Quarter: 2007Q3

REPORT INFORMATION
  Report Type: 
  Country: None (occurrence: None)
  Receive Date: 20070716
  Receipt Date: 20070704
  Transmission Date: 20080115
  Serious: Yes (Death, Congenital Anomaly)
  Sender: FDA-Public Use
  Company Number: GXKR2007DK05834

PATIENT
  Sex: Female

DRUGS (1)
  1. METFORMIN (NGX)(METFORMIN) UNKNOWN, 500MG [Suspect]
     Dosage: TRANSPLACENTAL
     Route: 064
     Dates: start: 20060129, end: 20070126

REACTIONS (11)
  - ANAL ATRESIA [None]
  - CONGENITAL GENITAL MALFORMATION [None]
  - DRUG EXPOSURE DURING PREGNANCY [None]
  - FOETAL CYSTIC HYGROMA [None]
  - INTRA-UTERINE DEATH [None]
  - KIDNEY MALFORMATION [None]
  - LOW SET EARS [None]
  - LOWER LIMB DEFORMITY [None]
  - MULTIPLE CONGENITAL ABNORMALITIES [None]
  - UMBILICAL CORD ABNORMALITY [None]
  - URINARY TRACT MALFORMATION [None]
